FAERS Safety Report 8510665-0 (Version None)
Quarter: 2012Q3

REPORT INFORMATION
  Report Type: 
  Country: None (occurrence: None)
  Receive Date: 20120716
  Receipt Date: 20120711
  Transmission Date: 20120928
  Serious: Yes (Hospitalization)
  Sender: FDA-Public Use
  Company Number: US-AMGEN-USASP2012043233

PATIENT
  Age: 51 Year
  Sex: Female

DRUGS (1)
  1. ENBREL [Suspect]
     Indication: RHEUMATOID ARTHRITIS
     Dosage: 50 MG, QWK
     Dates: start: 20040201

REACTIONS (6)
  - OBESITY SURGERY [None]
  - OEDEMA PERIPHERAL [None]
  - JOINT SWELLING [None]
  - ARTHRALGIA [None]
  - INJECTION SITE PAIN [None]
  - PAIN IN EXTREMITY [None]
